FAERS Safety Report 7058262-0 (Version None)
Quarter: 2010Q4

REPORT INFORMATION
  Report Type: 
  Country: None (occurrence: None)
  Receive Date: 20101022
  Receipt Date: 20101011
  Transmission Date: 20110411
  Serious: Yes (Other)
  Sender: FDA-Public Use
  Company Number: US-PFIZER INC-2010129611

PATIENT
  Sex: Female
  Weight: 58.957 kg

DRUGS (6)
  1. GEODON [Suspect]
     Indication: HALLUCINATION, AUDITORY
     Dosage: 160 MG, 1X/DAY
     Route: 048
     Dates: start: 20010101
  2. GEODON [Suspect]
     Dosage: 80 MG, 1X/DAY
     Dates: end: 20081201
  3. GEODON [Suspect]
     Dosage: 180MG (3X60MG): TWO IN MORNING AND ONE AT NIGHT
     Dates: start: 20091001
  4. LUNESTA [Concomitant]
     Dosage: UNK
  5. CLONAZEPAM [Concomitant]
     Dosage: UNK
  6. BENZTROPINE MESYLATE [Concomitant]
     Dosage: UNK

REACTIONS (2)
  - BLOOD GLUCOSE ABNORMAL [None]
  - DRUG EFFECT DECREASED [None]
